FAERS Safety Report 6390165-7 (Version None)
Quarter: 2009Q4

REPORT INFORMATION
  Report Type: 
  Country: None (occurrence: None)
  Receive Date: 20091003
  Receipt Date: 20090921
  Transmission Date: 20100525
  Serious: Yes (Hospitalization, Other)
  Sender: FDA-Public Use
  Company Number: 231848K08USA

PATIENT
  Age: 39 Year
  Sex: Female

DRUGS (10)
  1. REBIF [Suspect]
     Indication: MULTIPLE SCLEROSIS
     Dosage: 44 MCG, 3 IN 1 WEEKS, SUBCUTANEOUS
     Route: 058
     Dates: start: 20031024, end: 20090901
  2. REBIF [Suspect]
     Indication: MULTIPLE SCLEROSIS
     Dosage: 44 MCG, 3 IN 1 WEEKS, SUBCUTANEOUS
     Route: 058
     Dates: start: 20090901
  3. VITAMIN B2 (RIBOFLAVIN /00154901/) [Concomitant]
  4. ALBUTEROL INHALER (SALBUTAMOL /00139501/) [Concomitant]
  5. TYLENOL [Concomitant]
  6. HYDROCODONE (HYDROCODONE) [Concomitant]
  7. TOPAMAX [Concomitant]
  8. ANTI-SEIZURE MEDICATION (ANTIEPILEPTICS) [Concomitant]
  9. VITAMIN D [Concomitant]
  10. STEROID DROPS (CORTICOSTEROID NOS) [Concomitant]

REACTIONS (10)
  - BACTERIAL INFECTION [None]
  - CONVULSION [None]
  - HYPERTENSION [None]
  - KIDNEY INFECTION [None]
  - NEPHROLITHIASIS [None]
  - PARATHYROID TUMOUR BENIGN [None]
  - PROTEIN URINE PRESENT [None]
  - RENAL FAILURE [None]
  - UTERINE LEIOMYOMA [None]
  - UVEITIS [None]
